FAERS Safety Report 7769996-4 (Version None)
Quarter: 2011Q3

REPORT INFORMATION
  Report Type: 
  Country: None (occurrence: None)
  Receive Date: 20110922
  Receipt Date: 20100115
  Transmission Date: 20111222
  Serious: No
  Sender: FDA-Public Use
  Company Number: US-ASTRAZENECA-2009SE15644

PATIENT
  Age: 594 Month
  Sex: Male
  Weight: 99.8 kg

DRUGS (16)
  1. ZOLOFT [Concomitant]
     Dosage: 05-100 MG
     Dates: start: 20070801
  2. CLONAZEPAM [Concomitant]
  3. HYDROCHLOROTHIAZIDE [Concomitant]
     Dates: start: 20070101
  4. ZOCOR [Concomitant]
     Dates: start: 20070101
  5. SEROQUEL [Suspect]
     Indication: HALLUCINATION
     Route: 048
     Dates: start: 20040101, end: 20090501
  6. SEROQUEL [Suspect]
     Dosage: 400-800 MG
     Route: 048
     Dates: start: 20070802
  7. TRAZODONE HYDROCHLORIDE [Concomitant]
  8. RISPERDAL [Concomitant]
     Dates: start: 20070101
  9. ZESTRIL [Concomitant]
     Dates: start: 20070101
  10. CELEBREX [Concomitant]
     Dates: start: 20070101
  11. TOPAMAX [Concomitant]
     Route: 048
     Dates: start: 20070101
  12. DEPAKOTE [Concomitant]
     Dates: start: 20070101
  13. LEXAPRO [Concomitant]
     Dates: start: 20070101
  14. GEODON [Concomitant]
  15. ABILIFY [Concomitant]
     Dates: start: 20070101
  16. WELLBUTRIN [Concomitant]
     Dates: start: 20070101

REACTIONS (8)
  - BLOOD TRIGLYCERIDES INCREASED [None]
  - TREMOR [None]
  - OBESITY [None]
  - BLOOD CHOLESTEROL INCREASED [None]
  - TYPE 2 DIABETES MELLITUS [None]
  - HYPERLIPIDAEMIA [None]
  - HYPERCHOLESTEROLAEMIA [None]
  - WEIGHT INCREASED [None]
